FAERS Safety Report 10194303 (Version 2)
Quarter: 2014Q2

REPORT INFORMATION
  Report Type: Report from Study
  Country: BR (occurrence: BR)
  Receive Date: 20140526
  Receipt Date: 20140526
  Transmission Date: 20141212
  Serious: Yes (Hospitalization, Other)
  Sender: FDA-Public Use
  Company Number: BR-ROCHE-795883

PATIENT
  Sex: Female
  Weight: 85 kg

DRUGS (11)
  1. MABTHERA [Suspect]
     Indication: RHEUMATOID ARTHRITIS
     Dosage: LATEST INFUSION: 2013.
     Route: 042
     Dates: start: 200911, end: 201108
  2. HYDROCHLOROTHIAZIDE/RAMIPRIL [Concomitant]
     Dosage: DOSE:5/25, FREQUENCY:1 TABLET
     Route: 065
  3. LASIX [Concomitant]
     Route: 065
  4. VITAMIN E [Concomitant]
     Route: 065
  5. METFORMIN [Concomitant]
     Route: 065
  6. ATENOLOL [Concomitant]
     Route: 065
  7. HUMULIN R [Concomitant]
     Dosage: FREQUENCY:20 IU IN THE MORNING, 20 IU AT LUNCH AND 12 IU AT DINNER
     Route: 065
  8. LEVEMIR [Concomitant]
     Dosage: FREQUENCY:42 IU IN THE MORNING AND 24 IU AT NIGHT
     Route: 065
  9. INSULIN [Concomitant]
  10. FENERGAN [Concomitant]
  11. NAPRIX [Concomitant]

REACTIONS (6)
  - Cataract [Not Recovered/Not Resolved]
  - Impaired self-care [Recovered/Resolved]
  - Drug ineffective [Unknown]
  - Rash macular [Unknown]
  - Peripheral swelling [Not Recovered/Not Resolved]
  - Influenza [Unknown]
